FAERS Safety Report 7007602-7 (Version None)
Quarter: 2010Q3

REPORT INFORMATION
  Report Type: 
  Country: None (occurrence: None)
  Receive Date: 20100917
  Receipt Date: 20100913
  Transmission Date: 20110219
  Serious: Yes (Other)
  Sender: FDA-Public Use
  Company Number: 2009SP037253

PATIENT

DRUGS (5)
  1. PEG-INTRON [Suspect]
     Indication: HEPATITIS C
     Dosage: 80 MCG;QW;SC
     Route: 058
     Dates: start: 20081006, end: 20091112
  2. REBETOL [Suspect]
     Indication: HEPATITIS C
     Dosage: 300 MG;BID;PO
     Route: 048
     Dates: start: 20081006, end: 20091119
  3. NORVASC [Concomitant]
  4. JUVELA N [Concomitant]
  5. METHYLCOBAL [Concomitant]

REACTIONS (2)
  - DIPLOPIA [None]
  - IIIRD NERVE PARALYSIS [None]
